FAERS Safety Report 24794680 (Version 1)
Quarter: 2024Q4

REPORT INFORMATION
  Report Type: Spontaneous
  Country: RS (occurrence: RS)
  Receive Date: 20241231
  Receipt Date: 20241231
  Transmission Date: 20250115
  Serious: Yes (Death, Hospitalization, Other)
  Sender: GLAND PHARMA LTD
  Company Number: RS-GLANDPHARMA-RS-2024GLNLIT01330

PATIENT
  Age: 39 Year
  Sex: Male

DRUGS (3)
  1. HALOPERIDOL DECANOATE [Suspect]
     Active Substance: HALOPERIDOL DECANOATE
     Indication: Product used for unknown indication
     Route: 065
  2. DIAZEPAM [Suspect]
     Active Substance: DIAZEPAM
     Indication: Product used for unknown indication
     Route: 065
  3. VALPROIC ACID [Suspect]
     Active Substance: VALPROIC ACID
     Indication: Product used for unknown indication
     Route: 065

REACTIONS (11)
  - Respiratory failure [Fatal]
  - Cardiac arrest [Fatal]
  - Hyperglycaemia [Fatal]
  - Miosis [Fatal]
  - Hypotonia [Fatal]
  - Bradycardia [Fatal]
  - Toxicity to various agents [Fatal]
  - Coma [Fatal]
  - Hypotension [Fatal]
  - Pneumonia [Fatal]
  - Intentional overdose [Unknown]
